FAERS Safety Report 7342038-0 (Version None)
Quarter: 2011Q1

REPORT INFORMATION
  Report Type: 
  Country: None (occurrence: None)
  Receive Date: 20110309
  Receipt Date: 20110303
  Transmission Date: 20110831
  Serious: Yes (Other)
  Sender: FDA-Public Use
  Company Number: LT-ABBOTT-11P-234-0709327-00

PATIENT
  Sex: Female

DRUGS (3)
  1. TARKA [Suspect]
     Indication: HYPERTENSION
     Dosage: 1- 180MG/2MG TABS PER DAY
     Route: 048
     Dates: start: 20100901
  2. TARKA [Suspect]
  3. TRANDOLAPRIL [Concomitant]
     Indication: HYPERTENSION
     Route: 048
     Dates: start: 20090101

REACTIONS (3)
  - CONVULSION [None]
  - TREMOR [None]
  - CHEST DISCOMFORT [None]
